FAERS Safety Report 6388458-2 (Version None)
Quarter: 2009Q4

REPORT INFORMATION
  Report Type: 
  Country: None (occurrence: None)
  Receive Date: 20091005
  Receipt Date: 20090928
  Transmission Date: 20100525
  Serious: Yes (Life-Threatening, Hospitalization, Disabling, Other)
  Sender: FDA-Public Use
  Company Number: A0806557A

PATIENT
  Age: 6 Year
  Sex: Male

DRUGS (2)
  1. AUGMENTIN ES-600 [Suspect]
     Dosage: 1.5TSP TWICE PER DAY
     Route: 048
     Dates: start: 20090605, end: 20090615
  2. TYLENOL (CAPLET) [Suspect]
     Route: 065

REACTIONS (18)
  - ALANINE AMINOTRANSFERASE INCREASED [None]
  - ASPARTATE AMINOTRANSFERASE INCREASED [None]
  - BILE DUCT OBSTRUCTION [None]
  - BIOPSY LIVER [None]
  - BLOOD ALKALINE PHOSPHATASE INCREASED [None]
  - BLOOD BILIRUBIN INCREASED [None]
  - BLOOD LACTATE DEHYDROGENASE INCREASED [None]
  - CHOLESTASIS [None]
  - HEPATIC NECROSIS [None]
  - HEPATITIS [None]
  - HEPATOTOXICITY [None]
  - JAUNDICE [None]
  - LIVER INJURY [None]
  - LIVER TRANSPLANT [None]
  - MIXED LIVER INJURY [None]
  - NAUSEA [None]
  - PYREXIA [None]
  - SCLERAL DISCOLOURATION [None]
